FAERS Safety Report 15083344 (Version 2)
Quarter: 2018Q4

REPORT INFORMATION
  Report Type: Spontaneous
  Country: GB (occurrence: GB)
  Receive Date: 20180628
  Receipt Date: 20181011
  Transmission Date: 20190204
  Serious: Yes (Other)
  Sender: FDA-Public Use
  Company Number: GB-MYLANLABS-2018M1045491

PATIENT
  Age: 37 Year
  Sex: Female
  Weight: 60 kg

DRUGS (4)
  1. LAMOTRIGINE. [Suspect]
     Active Substance: LAMOTRIGINE
     Indication: EPILEPSY
     Dosage: 275 MG, UNK, 250MG TWICE DAILY + 25MG EXTRA MORNING GIVING ADVERSE REACTION
     Route: 048
  2. LAMOTRIGINE. [Suspect]
     Active Substance: LAMOTRIGINE
     Dosage: 500 MG, QD
     Route: 048
  3. PREGABALIN. [Concomitant]
     Active Substance: PREGABALIN
     Indication: EPILEPSY
     Dosage: 400 MG, QD
  4. KEPPRA [Concomitant]
     Active Substance: LEVETIRACETAM
     Indication: EPILEPSY
     Dosage: 1000 MG, QD, REDUCED OVER LAST YEAR FROM 1500MG TWICE DAILY

REACTIONS (2)
  - Eye movement disorder [Recovered/Resolved]
  - Eyelid disorder [Recovered/Resolved]
